FAERS Safety Report 4796305-5 (Version None)
Quarter: 2005Q4

REPORT INFORMATION
  Report Type: 
  Country: None (occurrence: None)
  Receive Date: 20051007
  Receipt Date: 20050926
  Transmission Date: 20060501
  Serious: Yes (Death)
  Sender: FDA-Public Use
  Company Number: 218073

PATIENT
  Age: 16 Year
  Sex: Female
  Weight: 33 kg

DRUGS (1)
  1. NUTROPIN [Suspect]
     Indication: BODY HEIGHT BELOW NORMAL
     Dosage: 3.9 MG, 6/WEEK, SUBCUTANEOUS
     Route: 058
     Dates: start: 20021209

REACTIONS (2)
  - CYSTIC FIBROSIS [None]
  - RESPIRATORY FAILURE [None]
